FAERS Safety Report 18123492 (Version 1)
Quarter: 2020Q3

REPORT INFORMATION
  Report Type: Spontaneous
  Country: US (occurrence: US)
  Receive Date: 20200807
  Receipt Date: 20200807
  Transmission Date: 20201103
  Serious: Yes (Other)
  Sender: FDA-Public Use
  Company Number: None

PATIENT
  Age: 45 Year
  Sex: Female
  Weight: 80.55 kg

DRUGS (13)
  1. PROBIOTICS [Concomitant]
     Active Substance: PROBIOTICS NOS
  2. AMITRIPTYLINE [Concomitant]
     Active Substance: AMITRIPTYLINE
  3. MAGNESIUM [Concomitant]
     Active Substance: MAGNESIUM
  4. OMEGA [Concomitant]
  5. FLAXSEED [Concomitant]
     Active Substance: FLAX SEED
  6. HANDVANA HYDROCLEAN HAND SANITIZER [Suspect]
     Active Substance: BENZALKONIUM CHLORIDE
     Indication: COVID-19 PROPHYLAXIS
     Dosage: ?          QUANTITY:17 OUNCE(S);?
     Route: 061
     Dates: start: 20200720, end: 20200807
  7. VITAMIN D [Concomitant]
     Active Substance: VITAMIN D NOS
  8. CALCIUM [Concomitant]
     Active Substance: CALCIUM
  9. 5HTP [Concomitant]
  10. SELENIUM [Concomitant]
     Active Substance: SELENIUM
  11. TOLTERODINE [Concomitant]
     Active Substance: TOLTERODINE
  12. MULTIVITAMINS [Concomitant]
     Active Substance: VITAMINS
  13. TYROSINE [Concomitant]
     Active Substance: TYROSINE

REACTIONS (1)
  - Burning sensation [None]

NARRATIVE: CASE EVENT DATE: 20200720
